FAERS Safety Report 9988301 (Version 2)
Quarter: 2014Q2

REPORT INFORMATION
  Report Type: Spontaneous
  Country: CH (occurrence: CH)
  Receive Date: 20140310
  Receipt Date: 20140430
  Transmission Date: 20141212
  Serious: Yes (Other)
  Sender: FDA-Public Use
  Company Number: CH-ROCHE-1360938

PATIENT
  Age: 66 Year
  Sex: Male
  Weight: 75.3 kg

DRUGS (9)
  1. MABTHERA [Suspect]
     Indication: CHRONIC LYMPHOCYTIC LEUKAEMIA
     Route: 042
     Dates: start: 200511, end: 201401
  2. CYCLOPHOSPHAMIDE [Concomitant]
  3. DOXORUBICINE [Concomitant]
  4. VINCRISTINE [Concomitant]
  5. PREDNISONE [Concomitant]
  6. ENDOXAN [Concomitant]
  7. ETOPOSIDE [Concomitant]
  8. FLUDARA [Concomitant]
  9. RIBOMUSTIN [Concomitant]

REACTIONS (4)
  - Prostate cancer [Not Recovered/Not Resolved]
  - Bladder transitional cell carcinoma [Recovered/Resolved]
  - Pneumonia [Unknown]
  - Disease progression [Not Recovered/Not Resolved]
